FAERS Safety Report 8971527 (Version 1)
Quarter: 2012Q4

REPORT INFORMATION
  Report Type: 
  Country: US (occurrence: US)
  Receive Date: 20121217
  Receipt Date: 20121217
  Transmission Date: 20130627
  Serious: Yes (Hospitalization)
  Sender: FDA-Public Use
  Company Number: US-FRI-1000040983

PATIENT
  Age: 23 Month
  Sex: Female
  Weight: 11 kg

DRUGS (1)
  1. VIIBRYD [Suspect]
     Route: 048

REACTIONS (6)
  - Status epilepticus [Recovered/Resolved]
  - Accidental exposure to product [Recovered/Resolved]
  - Somnolence [Recovered/Resolved]
  - Hypertonia [Recovered/Resolved]
  - Hyperreflexia [Recovered/Resolved]
  - Body temperature increased [Recovered/Resolved]
